FAERS Safety Report 4549990-7 (Version None)
Quarter: 2005Q1

REPORT INFORMATION
  Report Type: 
  Country: None (occurrence: None)
  Receive Date: 20050112
  Receipt Date: 20050107
  Transmission Date: 20050727
  Serious: Yes (Disabling)
  Sender: FDA-Public Use
  Company Number: US-BRISTOL-MYERS SQUIBB COMPANY-12819561

PATIENT
  Age: 90 Year
  Sex: Male
  Weight: 70 kg

DRUGS (4)
  1. WARFARIN SODIUM [Suspect]
     Indication: PROPHYLAXIS
     Dates: start: 20040211
  2. BLINDED: IRBESARTAN [Suspect]
     Indication: HYPERTENSION
     Dates: start: 20040211
  3. BLINDED: PLACEBO [Suspect]
     Indication: HYPERTENSION
     Dates: start: 20040211
  4. ASPIRIN [Concomitant]

REACTIONS (2)
  - CARDIOMEGALY [None]
  - PLEURAL EFFUSION [None]
